FAERS Safety Report 5760401 (Version 4)
Quarter: 2013Q1

REPORT INFORMATION
  Report Type: Spontaneous
  Country: US (occurrence: US)
  Receive Date: 20050317
  Receipt Date: 20130131
  Transmission Date: 20140127
  Serious: Yes (Other)
  Sender: FDA-Public Use
  Company Number: US-GLAXOSMITHKLINE-A0549007A

PATIENT
  Sex: Female

DRUGS (3)
  1. ZOFRAN [Suspect]
     Indication: NAUSEA
     Route: 042
     Dates: start: 200409, end: 200409
  2. REGLAN [Suspect]
     Indication: VOMITING
     Route: 065
     Dates: start: 200409, end: 200409
  3. PHENERGAN [Suspect]
     Indication: VOMITING
     Route: 065
     Dates: start: 200409, end: 200409

REACTIONS (6)
  - Abortion spontaneous [Unknown]
  - Foetal death [Unknown]
  - Vaginal haemorrhage [Unknown]
  - Cardiac flutter [Unknown]
  - Drug interaction [Unknown]
  - Exposure during pregnancy [Unknown]
